FAERS Safety Report 8282916-1 (Version None)
Quarter: 2012Q2

REPORT INFORMATION
  Report Type: 
  Country: None (occurrence: None)
  Receive Date: 20120413
  Receipt Date: 20120405
  Transmission Date: 20120825
  Serious: Yes (Other)
  Sender: FDA-Public Use
  Company Number: US-VERTEX PHARMACEUTICALS INC.-AE-2012-004991

PATIENT
  Sex: Male
  Weight: 69.462 kg

DRUGS (5)
  1. COPEGUS [Concomitant]
     Indication: HEPATITIS C
     Route: 048
     Dates: start: 20120322
  2. COREG [Concomitant]
     Indication: HYPERTENSION
     Route: 048
  3. NOVOLOG [Concomitant]
     Indication: DIABETES MELLITUS
  4. PEGASYS [Concomitant]
     Indication: HEPATITIS C
     Route: 058
     Dates: start: 20120322
  5. INCIVEK [Suspect]
     Indication: HEPATITIS C
     Route: 048
     Dates: start: 20120322

REACTIONS (2)
  - RIB FRACTURE [None]
  - FALL [None]
